FAERS Safety Report 13235430 (Version 2)
Quarter: 2017Q1

REPORT INFORMATION
  Report Type: Spontaneous
  Country: FR (occurrence: FR)
  Receive Date: 20170215
  Receipt Date: 20170306
  Transmission Date: 20170428
  Serious: Yes (Other)
  Sender: FDA-Public Use
  Company Number: FR-PFIZER INC-2017028202

PATIENT
  Age: 70 Year
  Sex: Female
  Weight: 68 kg

DRUGS (4)
  1. ESOMEPRAZOLE [Concomitant]
     Active Substance: ESOMEPRAZOLE
     Indication: GASTRITIS
     Dosage: 40 MG, 1X/DAY (IN THE EVENINIG)
     Route: 048
     Dates: start: 20150814
  2. ALPRESS [Suspect]
     Active Substance: PRAZOSIN
     Indication: BLOOD PRESSURE INCREASED
     Dosage: 5 MG, 1X/DAY (IN THE MORNING)
     Route: 048
     Dates: start: 20170101
  3. KARDEGIC [Concomitant]
     Active Substance: ASPIRIN LYSINE
     Dosage: 160 MG, 1X/DAY (AT NOON)
     Route: 048
     Dates: start: 20150814
  4. AMLODIPINE [Concomitant]
     Active Substance: AMLODIPINE BESYLATE
     Indication: BLOOD PRESSURE INCREASED
     Dosage: 5 MG, 1X/DAY (IN THE EVENING)
     Route: 048
     Dates: start: 20160609

REACTIONS (4)
  - Product quality issue [Unknown]
  - Blood pressure inadequately controlled [Unknown]
  - Abdominal pain upper [Unknown]
  - Dyspepsia [Unknown]

NARRATIVE: CASE EVENT DATE: 20170101
